FAERS Safety Report 20858055 (Version 2)
Quarter: 2022Q2

REPORT INFORMATION
  Report Type: Spontaneous
  Country: US (occurrence: US)
  Receive Date: 20220521
  Receipt Date: 20220602
  Transmission Date: 20220721
  Serious: No
  Sender: FDA-Public Use
  Company Number: US-LUPIN PHARMACEUTICALS INC.-2022-07052

PATIENT
  Sex: Female

DRUGS (1)
  1. VANCOMYCIN HYDROCHLORIDE [Suspect]
     Active Substance: VANCOMYCIN HYDROCHLORIDE
     Indication: Sinus disorder
     Dosage: UNK
     Route: 065

REACTIONS (4)
  - Product prescribing error [Unknown]
  - Product physical issue [Unknown]
  - Product use in unapproved indication [Unknown]
  - No adverse event [Unknown]
